FAERS Safety Report 7305386-6 (Version None)
Quarter: 2011Q1

REPORT INFORMATION
  Report Type: 
  Country: None (occurrence: None)
  Receive Date: 20110222
  Receipt Date: 20110214
  Transmission Date: 20110831
  Serious: Yes (Hospitalization)
  Sender: FDA-Public Use
  Company Number: US-GILEAD-2011-0035887

PATIENT
  Sex: Male
  Weight: 106.69 kg

DRUGS (15)
  1. NORVASC [Concomitant]
  2. BUPROPION [Concomitant]
  3. DIOVAN [Concomitant]
  4. PRAVACHOL [Concomitant]
  5. WARFARIN [Concomitant]
  6. CITALOPRAM [Concomitant]
  7. LETAIRIS [Suspect]
     Indication: PULMONARY HYPERTENSION
     Route: 048
     Dates: start: 20100708
  8. GLYBURIDE [Concomitant]
  9. OMEPRAZOLE [Concomitant]
  10. ACETAMINOPHEN [Concomitant]
  11. LASIX [Concomitant]
  12. NOVOLIN 70/30 [Concomitant]
  13. METOPROLOL SUCCINATE [Concomitant]
  14. ASA [Concomitant]
  15. TRAZODONE [Concomitant]

REACTIONS (3)
  - RESPIRATORY DISORDER [None]
  - FATIGUE [None]
  - FLUID OVERLOAD [None]
